FAERS Safety Report 9577016 (Version 2)
Quarter: 2013Q4

REPORT INFORMATION
  Report Type: Spontaneous
  Country: US (occurrence: US)
  Receive Date: 20131001
  Receipt Date: 20131001
  Transmission Date: 20140711
  Serious: No
  Sender: FDA-Public Use
  Company Number: US-AMGEN-USASP2012084267

PATIENT
  Sex: Female
  Weight: 56.69 kg

DRUGS (6)
  1. ENBREL [Suspect]
     Indication: RHEUMATOID ARTHRITIS
     Dosage: 50 MG, QWK
     Route: 058
  2. PREDNISONE [Concomitant]
     Dosage: 1 MG, UNK
  3. DIOVAN [Concomitant]
     Dosage: 40 MG, UNK
  4. VITAMIN C                          /00008001/ [Concomitant]
     Dosage: 100 MG CHW, UNK
  5. VITAMIN E                          /00110501/ [Concomitant]
     Dosage: 400 UNIT, UNK
  6. CALCIUM +D                         /00944201/ [Concomitant]
     Dosage: UNK

REACTIONS (5)
  - Skin wrinkling [Unknown]
  - Pigmentation disorder [Unknown]
  - Alopecia [Not Recovered/Not Resolved]
  - Pain in extremity [Unknown]
  - Haemorrhoids [Unknown]
